FAERS Safety Report 9961975 (Version 1)
Quarter: 2014Q1

REPORT INFORMATION
  Report Type: Report from Study
  Country: US (occurrence: US)
  Receive Date: 20140305
  Receipt Date: 20140305
  Transmission Date: 20141002
  Serious: No
  Sender: FDA-Public Use
  Company Number: US-ABBVIE-13P-163-1114526-00

PATIENT
  Sex: Male

DRUGS (6)
  1. HUMIRA [Suspect]
     Indication: COLITIS ULCERATIVE
     Dosage: LOADING DOSE
  2. HUMIRA [Suspect]
     Dosage: LOADING DOSE
  3. HUMIRA [Suspect]
  4. AZATHIOPRINE [Concomitant]
     Indication: PRODUCT USED FOR UNKNOWN INDICATION
  5. TRAMADOL [Concomitant]
     Indication: DRUG TOXICITY PROPHYLAXIS
  6. ONDANSETRON [Concomitant]
     Indication: DRUG TOXICITY PROPHYLAXIS

REACTIONS (3)
  - Injection site pain [Recovered/Resolved]
  - Injection site pain [Recovered/Resolved]
  - Injection site pain [Recovered/Resolved]
